FAERS Safety Report 4314218-X (Version None)
Quarter: 2004Q1

REPORT INFORMATION
  Report Type: 
  Country: None (occurrence: None)
  Receive Date: 20040304
  Receipt Date: 20030808
  Transmission Date: 20041129
  Serious: Yes (Hospitalization)
  Sender: FDA-Public Use
  Company Number: 201880

PATIENT
  Age: 4 Year
  Sex: Male

DRUGS (1)
  1. NUTROPIN AQ [Suspect]
     Indication: BODY HEIGHT BELOW NORMAL
     Dosage: SUBCUTANEOUS
     Route: 058
     Dates: start: 20001201

REACTIONS (1)
  - ASEPTIC NECROSIS BONE [None]
